FAERS Safety Report 11184059 (Version 1)
Quarter: 2015Q2

REPORT INFORMATION
  Report Type: Spontaneous
  Country: US (occurrence: None)
  Receive Date: 20150611
  Receipt Date: 20150611
  Transmission Date: 20150821
  Serious: No
  Sender: FDA-Public Use
  Company Number: None

PATIENT
  Age: 53 Year
  Sex: Male
  Weight: 68.8 kg

DRUGS (1)
  1. PREGABALIN. [Suspect]
     Active Substance: PREGABALIN
     Route: 048
     Dates: start: 20141021, end: 20141126

REACTIONS (6)
  - Fatigue [None]
  - Abnormal behaviour [None]
  - Confusional state [None]
  - Coordination abnormal [None]
  - Speech disorder [None]
  - Balance disorder [None]

NARRATIVE: CASE EVENT DATE: 20141125
